FAERS Safety Report 6082697-6 (Version None)
Quarter: 2009Q1

REPORT INFORMATION
  Report Type: 
  Country: None (occurrence: None)
  Receive Date: 20090218
  Receipt Date: 20090210
  Transmission Date: 20090719
  Serious: Yes (Other)
  Sender: FDA-Public Use
  Company Number: PHEH2009US01634

PATIENT
  Sex: Male
  Weight: 86.168 kg

DRUGS (4)
  1. ZOMETA [Suspect]
     Indication: METASTASES TO BONE
     Dosage: 4 MG, UNK
     Dates: start: 20061013, end: 20090101
  2. ZOMETA [Suspect]
     Indication: PROSTATE CANCER
  3. ARANESP [Concomitant]
  4. MITOXANTRONE [Concomitant]

REACTIONS (4)
  - ABSCESS [None]
  - OSTEONECROSIS [None]
  - PAIN IN JAW [None]
  - TOOTHACHE [None]
